FAERS Safety Report 6271740-7 (Version None)
Quarter: 2009Q3

REPORT INFORMATION
  Report Type: 
  Country: None (occurrence: None)
  Receive Date: 20090717
  Receipt Date: 20090710
  Transmission Date: 20100115
  Serious: Yes (Other)
  Sender: FDA-Public Use
  Company Number: GB-TEVA-200357ISR

PATIENT
  Age: 29 Year
  Sex: Male

DRUGS (2)
  1. PHENYTOIN [Suspect]
     Indication: EPILEPSY
     Dates: start: 19990101
  2. PHENYTOIN [Suspect]

REACTIONS (2)
  - DRUG TOXICITY [None]
  - PRIAPISM [None]
